FAERS Safety Report 6500873-2 (Version None)
Quarter: 2009Q4

REPORT INFORMATION
  Report Type: 
  Country: None (occurrence: None)
  Receive Date: 20091216
  Receipt Date: 20090324
  Transmission Date: 20100525
  Serious: No
  Sender: FDA-Public Use
  Company Number: A0776741A

PATIENT
  Age: 48 Year
  Sex: Male

DRUGS (1)
  1. NICOTINE POLACRILEX [Suspect]
     Indication: SMOKING CESSATION THERAPY

REACTIONS (5)
  - BURNING SENSATION [None]
  - GLOSSODYNIA [None]
  - INTENTIONAL DRUG MISUSE [None]
  - ORAL PAIN [None]
  - PAIN [None]
